FAERS Safety Report 16457930 (Version 4)
Quarter: 2019Q3

REPORT INFORMATION
  Report Type: Spontaneous
  Country: JP (occurrence: JP)
  Receive Date: 20190620
  Receipt Date: 20190725
  Transmission Date: 20191004
  Serious: Yes (Hospitalization, Other)
  Sender: FDA-Public Use
  Company Number: JP-PFIZER INC-2019249776

PATIENT
  Age: 7 Year
  Sex: Male

DRUGS (3)
  1. BLINCYTO [Concomitant]
     Active Substance: BLINATUMOMAB
     Dosage: UNK
     Dates: end: 20190607
  2. BESPONSA [Suspect]
     Active Substance: INOTUZUMAB OZOGAMICIN
     Indication: ACUTE LYMPHOCYTIC LEUKAEMIA
     Dosage: 0.8 MG/M2, DAILY
     Route: 041
     Dates: start: 20190607, end: 20190607
  3. BESPONSA [Suspect]
     Active Substance: INOTUZUMAB OZOGAMICIN
     Dosage: 0.5 MG/M2, DAILY
     Dates: start: 20190614, end: 20190614

REACTIONS (6)
  - Pneumonia [Not Recovered/Not Resolved]
  - Product use issue [Unknown]
  - Venoocclusive liver disease [Recovered/Resolved]
  - Meningitis bacterial [Recovered/Resolved]
  - Off label use [Unknown]
  - Fungal infection [Not Recovered/Not Resolved]

NARRATIVE: CASE EVENT DATE: 20190607
